FAERS Safety Report 5368006-6 (Version None)
Quarter: 2007Q2

REPORT INFORMATION
  Report Type: 
  Country: None (occurrence: None)
  Receive Date: 20070622
  Receipt Date: 20070612
  Transmission Date: 20071010
  Serious: Yes (Other)
  Sender: FDA-Public Use
  Company Number: DE-PFIZER INC-2007048436

PATIENT
  Sex: Male

DRUGS (1)
  1. SU-011,248 [Suspect]
     Route: 048

REACTIONS (1)
  - CONVULSION [None]
